FAERS Safety Report 10058413 (Version 1)
Quarter: 2014Q2

REPORT INFORMATION
  Report Type: Spontaneous
  Country: US (occurrence: US)
  Receive Date: 20140404
  Receipt Date: 20140404
  Transmission Date: 20141212
  Serious: No
  Sender: FDA-Public Use
  Company Number: US-BAYER-2014-050227

PATIENT
  Age: 78 Year
  Sex: Male
  Weight: 90.25 kg

DRUGS (3)
  1. ALEVE CAPLET [Suspect]
     Dosage: 3 DF, BID
     Route: 048
  2. CARDIZEM [Concomitant]
     Dosage: UNK
  3. TENEX [Concomitant]
     Dosage: UNK

REACTIONS (3)
  - Intentional product misuse [None]
  - Off label use [None]
  - Incorrect drug administration duration [None]
